FAERS Safety Report 7542591-8 (Version None)
Quarter: 2011Q2

REPORT INFORMATION
  Report Type: 
  Country: None (occurrence: None)
  Receive Date: 20110613
  Receipt Date: 20110531
  Transmission Date: 20111010
  Serious: Yes (Disabling, Other)
  Sender: FDA-Public Use
  Company Number: JP-ROCHE-777748

PATIENT
  Sex: Female
  Weight: 49 kg

DRUGS (8)
  1. IRINOTECAN HCL [Suspect]
     Indication: RECTAL CANCER RECURRENT
     Route: 041
     Dates: start: 20110322, end: 20110405
  2. LEUCOVORIN CALCIUM [Suspect]
     Indication: LARGE INTESTINE CARCINOMA
     Dosage: REPORTED AS : ISOVORIN
     Route: 041
     Dates: start: 20110322, end: 20110405
  3. LOPERAMIDE HCL [Concomitant]
     Route: 048
     Dates: start: 20110221
  4. AVASTIN [Suspect]
     Indication: RECTAL CANCER RECURRENT
     Route: 041
     Dates: start: 20110322, end: 20110405
  5. FLUOROURACIL [Suspect]
     Route: 040
     Dates: start: 20110322, end: 20110401
  6. FLUOROURACIL [Suspect]
     Indication: RECTAL CANCER RECURRENT
     Route: 040
     Dates: start: 20110322, end: 20110405
  7. DECADRON [Concomitant]
     Route: 048
     Dates: start: 20110405, end: 20110407
  8. PROTECADIN [Concomitant]
     Route: 048
     Dates: start: 20110112

REACTIONS (6)
  - OEDEMA PERIPHERAL [None]
  - PERIPHERAL ISCHAEMIA [None]
  - PIGMENTATION DISORDER [None]
  - MUSCULOSKELETAL STIFFNESS [None]
  - HYPOAESTHESIA [None]
  - EXTREMITY NECROSIS [None]
